FAERS Safety Report 4551436-X (Version None)
Quarter: 2005Q1

REPORT INFORMATION
  Report Type: 
  Country: None (occurrence: None)
  Receive Date: 20050104
  Receipt Date: 20041217
  Transmission Date: 20050727
  Serious: Yes (Other)
  Sender: FDA-Public Use
  Company Number: 2004-02667

PATIENT
  Age: 66 Year
  Sex: Male

DRUGS (1)
  1. IMMUCYST (BCG - IT (CONNAUGHT)) [Suspect]
     Indication: BLADDER CANCER
     Route: 043
     Dates: start: 20040809

REACTIONS (2)
  - ARTHRALGIA [None]
  - BOVINE TUBERCULOSIS [None]
